FAERS Safety Report 14955741 (Version 1)
Quarter: 2018Q2

REPORT INFORMATION
  Report Type: Spontaneous
  Country: TN (occurrence: TN)
  Receive Date: 20180531
  Receipt Date: 20180531
  Transmission Date: 20180711
  Serious: Yes (Death, Life-Threatening)
  Sender: FDA-Public Use
  Company Number: TN-ROCHE-2132292

PATIENT
  Sex: Male

DRUGS (1)
  1. ACTEMRA [Suspect]
     Active Substance: TOCILIZUMAB
     Indication: STILL^S DISEASE
     Route: 065

REACTIONS (3)
  - Histiocytosis haematophagic [Unknown]
  - Off label use [Unknown]
  - Pancytopenia [Fatal]

NARRATIVE: CASE EVENT DATE: 201804
